FAERS Safety Report 4926598-2 (Version None)
Quarter: 2006Q1

REPORT INFORMATION
  Report Type: 
  Country: None (occurrence: None)
  Receive Date: 20060228
  Receipt Date: 20050509
  Transmission Date: 20060701
  Serious: Yes (Life-Threatening, Hospitalization, Disabling, Other)
  Sender: FDA-Public Use
  Company Number: US-GLAXOSMITHKLINE-A0557754A

PATIENT
  Age: 41 Year
  Sex: Female

DRUGS (3)
  1. LAMICTAL [Suspect]
     Indication: BIPOLAR DISORDER
     Route: 048
     Dates: start: 20050324, end: 20050406
  2. NO CONCURRENT MEDICATION [Concomitant]
  3. ZYPREXA [Concomitant]

REACTIONS (12)
  - ADVERSE DRUG REACTION [None]
  - DRUG ERUPTION [None]
  - HEPATIC ENZYME INCREASED [None]
  - HEPATITIS [None]
  - LEUKOPENIA [None]
  - MYALGIA [None]
  - PYREXIA [None]
  - RASH [None]
  - RASH ERYTHEMATOUS [None]
  - RASH MORBILLIFORM [None]
  - SKIN EXFOLIATION [None]
  - STEVENS-JOHNSON SYNDROME [None]
